FAERS Safety Report 20899921 (Version 1)
Quarter: 2022Q2

REPORT INFORMATION
  Report Type: Spontaneous
  Country: US (occurrence: US)
  Receive Date: 20220601
  Receipt Date: 20220601
  Transmission Date: 20220721
  Serious: No
  Sender: FDA-Public Use
  Company Number: US-GLAXOSMITHKLINE-US2022083264

PATIENT
  Age: 76 Year
  Sex: Female

DRUGS (1)
  1. INCRUSE ELLIPTA [Suspect]
     Active Substance: UMECLIDINIUM BROMIDE
     Indication: Chronic obstructive pulmonary disease
     Dosage: 1 PUFF(S), USE 1 INHALATION BY MOUTH EVERY TWENTY-FOUR HOURS

REACTIONS (4)
  - Coronavirus infection [Not Recovered/Not Resolved]
  - Malaise [Unknown]
  - Eczema [Unknown]
  - Skin irritation [Unknown]

NARRATIVE: CASE EVENT DATE: 20220121
